FAERS Safety Report 9529730 (Version 2)
Quarter: 2013Q3

REPORT INFORMATION
  Report Type: Spontaneous
  Country: JP (occurrence: JP)
  Receive Date: 20130917
  Receipt Date: 20130917
  Transmission Date: 20140515
  Serious: Yes (Other)
  Sender: FDA-Public Use
  Company Number: JP-VIIV HEALTHCARE LIMITED-B0901061A

PATIENT
  Age: 41 Year
  Sex: Male

DRUGS (5)
  1. LAMIVUDINE + ZIDOVUDINE [Suspect]
     Indication: ACQUIRED IMMUNODEFICIENCY SYNDROME
     Route: 065
  2. EFAVIRENZ [Suspect]
     Indication: ACQUIRED IMMUNODEFICIENCY SYNDROME
     Route: 065
  3. TENOFOVIR DISOPROXIL FUMARATE [Suspect]
     Indication: ACQUIRED IMMUNODEFICIENCY SYNDROME
     Route: 065
  4. EMTRICITABINE [Suspect]
     Indication: ACQUIRED IMMUNODEFICIENCY SYNDROME
     Route: 065
  5. LOPINAVIR + RITONAVIR [Suspect]
     Indication: ACQUIRED IMMUNODEFICIENCY SYNDROME
     Route: 065

REACTIONS (9)
  - Basedow^s disease [Recovering/Resolving]
  - Blood HIV RNA increased [Unknown]
  - Exophthalmos [Unknown]
  - Diplopia [Unknown]
  - Amnesia [Unknown]
  - Dysphonia [Unknown]
  - Goitre [Unknown]
  - Tremor [Unknown]
  - Hypercholesterolaemia [Unknown]
